FAERS Safety Report 6931614-2 (Version None)
Quarter: 2010Q3

REPORT INFORMATION
  Report Type: 
  Country: None (occurrence: None)
  Receive Date: 20100819
  Receipt Date: 20100809
  Transmission Date: 20110219
  Serious: No
  Sender: FDA-Public Use
  Company Number: US-B.I. PHARMACEUTICALS,INC./RIDGEFIELD-2010-BP-09095BP

PATIENT
  Sex: Female

DRUGS (5)
  1. ZANTAC [Suspect]
     Indication: OESOPHAGEAL DISORDER
     Dosage: 150 MG
     Route: 048
     Dates: start: 20100804, end: 20100805
  2. PRILOSEC [Concomitant]
     Indication: OESOPHAGEAL DISORDER
  3. AVAPRO [Concomitant]
     Indication: HYPERTENSION
  4. LOVAZA [Concomitant]
     Indication: BLOOD TRIGLYCERIDES INCREASED
  5. RED YEAST RICE [Concomitant]
     Indication: BLOOD TRIGLYCERIDES INCREASED

REACTIONS (2)
  - NAUSEA [None]
  - THROAT IRRITATION [None]
